FAERS Safety Report 11624350 (Version 2)
Quarter: 2015Q4

REPORT INFORMATION
  Report Type: Spontaneous
  Country: AT (occurrence: AT)
  Receive Date: 20151013
  Receipt Date: 20151020
  Transmission Date: 20160304
  Serious: Yes (Life-Threatening, Hospitalization, Other)
  Sender: FDA-Public Use
  Company Number: AT-ELI_LILLY_AND_COMPANY-AT201510002274

PATIENT
  Age: 35 Year
  Sex: Female

DRUGS (7)
  1. ZYPREXA [Suspect]
     Active Substance: OLANZAPINE
     Dosage: 15 DF, UNKNOWN
     Route: 065
     Dates: start: 20150818, end: 20150825
  2. CIPRALEX [Concomitant]
     Active Substance: ESCITALOPRAM OXALATE
     Indication: PRODUCT USED FOR UNKNOWN INDICATION
     Dosage: 10 DF, UNKNOWN
     Route: 065
     Dates: start: 201401, end: 20150820
  3. CIPRALEX [Concomitant]
     Active Substance: ESCITALOPRAM OXALATE
     Dosage: 10 DF, UNKNOWN
     Route: 065
     Dates: start: 20150909
  4. QUILONORM                          /00033703/ [Suspect]
     Active Substance: LITHIUM ACETATE
     Indication: PRODUCT USED FOR UNKNOWN INDICATION
     Dosage: 675 DF, UNKNOWN
     Route: 065
     Dates: start: 201401, end: 20150825
  5. ZYPREXA [Suspect]
     Active Substance: OLANZAPINE
     Indication: PRODUCT USED FOR UNKNOWN INDICATION
     Dosage: 10 DF, UNKNOWN
     Route: 065
     Dates: start: 20150811, end: 20150817
  6. LASIX [Suspect]
     Active Substance: FUROSEMIDE
     Indication: CONSTIPATION
     Dosage: UNK, UNKNOWN
     Route: 065
  7. TEMESTA                            /00273201/ [Concomitant]
     Active Substance: LORAZEPAM
     Indication: PRODUCT USED FOR UNKNOWN INDICATION
     Dosage: 2 DF, UNKNOWN
     Route: 065
     Dates: start: 20150825, end: 20150919

REACTIONS (8)
  - Hypokalaemia [Recovered/Resolved]
  - Increased appetite [Unknown]
  - Affect lability [Unknown]
  - Acute kidney injury [Unknown]
  - Leukopenia [Not Recovered/Not Resolved]
  - Antipsychotic drug level below therapeutic [Unknown]
  - Panic reaction [Unknown]
  - Vomiting [Unknown]

NARRATIVE: CASE EVENT DATE: 20150811
